FAERS Safety Report 5508385-X (Version None)
Quarter: 2007Q4

REPORT INFORMATION
  Report Type: 
  Country: None (occurrence: None)
  Receive Date: 20071107
  Receipt Date: 20071029
  Transmission Date: 20080405
  Serious: Yes (Other)
  Sender: FDA-Public Use
  Company Number: PHBS2007US18365

PATIENT
  Age: 64 Year
  Sex: Female

DRUGS (1)
  1. PILOCARPINE 2%  (NVO) [Suspect]
     Indication: MIOSIS
     Dosage: 1 DF, UNK

REACTIONS (4)
  - RETINAL DISORDER [None]
  - SCOTOMA [None]
  - VISUAL ACUITY REDUCED [None]
  - VITREOUS DETACHMENT [None]
